FAERS Safety Report 15456718 (Version 1)
Quarter: 2018Q4

REPORT INFORMATION
  Report Type: Spontaneous
  Country: CA (occurrence: CA)
  Receive Date: 20181002
  Receipt Date: 20181002
  Transmission Date: 20190204
  Serious: Yes (Disabling)
  Sender: FDA-Public Use
  Company Number: CA-ELI_LILLY_AND_COMPANY-CA201809011028

PATIENT
  Age: 65 Year
  Sex: Male
  Weight: 81.18 kg

DRUGS (1)
  1. CYMBALTA [Suspect]
     Active Substance: DULOXETINE HYDROCHLORIDE
     Indication: PAIN
     Dosage: 1 DF, DAILY
     Route: 048

REACTIONS (8)
  - Anxiety [Recovering/Resolving]
  - Tremor [Recovering/Resolving]
  - Cerebral disorder [Recovering/Resolving]
  - Amnesia [Recovering/Resolving]
  - Nausea [Recovering/Resolving]
  - Confusional state [Recovering/Resolving]
  - Anger [Recovering/Resolving]
  - Withdrawal syndrome [Recovering/Resolving]
